FAERS Safety Report 10182727 (Version 1)
Quarter: 2014Q2

REPORT INFORMATION
  Report Type: Spontaneous
  Country: US (occurrence: None)
  Receive Date: 20140519
  Receipt Date: 20140519
  Transmission Date: 20141212
  Serious: Yes (Disabling, Other)
  Sender: FDA-Public Use
  Company Number: None

PATIENT
  Age: 39 Year
  Sex: Female
  Weight: 56.25 kg

DRUGS (1)
  1. DEPO-MEDROL [Suspect]
     Indication: OFF LABEL USE

REACTIONS (14)
  - Pain [None]
  - Muscle twitching [None]
  - Muscle spasms [None]
  - Arachnoiditis [None]
  - Cauda equina syndrome [None]
  - Depression [None]
  - Cerebrospinal fluid leakage [None]
  - Headache [None]
  - Malaise [None]
  - Genital disorder female [None]
  - Hysterectomy [None]
  - Intestinal obstruction [None]
  - Ileus [None]
  - Gastrointestinal disorder [None]
